FAERS Safety Report 22134195 (Version 1)
Quarter: 2023Q1

REPORT INFORMATION
  Report Type: Spontaneous
  Country: CN (occurrence: CN)
  Receive Date: 20230324
  Receipt Date: 20230324
  Transmission Date: 20230417
  Serious: Yes (Life-Threatening)
  Sender: FDA-Public Use
  Company Number: CN-BoehringerIngelheim-2023-BI-226251

PATIENT
  Age: 46 Year
  Sex: Male
  Weight: 68 kg

DRUGS (6)
  1. ALTEPLASE [Suspect]
     Active Substance: ALTEPLASE
     Indication: Thrombolysis
     Route: 042
     Dates: start: 20230311, end: 20230311
  2. ALTEPLASE [Suspect]
     Active Substance: ALTEPLASE
     Route: 042
     Dates: start: 20230311, end: 20230311
  3. FAMOTIDINE [Concomitant]
     Active Substance: FAMOTIDINE
     Indication: Gastric mucosal lesion
     Route: 042
     Dates: start: 20230311, end: 20230311
  4. FAMOTIDINE [Concomitant]
     Active Substance: FAMOTIDINE
     Indication: Prophylaxis
  5. SODIUM NITROPRUSSIDE [Concomitant]
     Active Substance: SODIUM NITROPRUSSIDE
     Indication: Cerebral infarction
     Route: 042
     Dates: start: 20230311, end: 20230311
  6. ATORVASTATIN CALCIUM [Concomitant]
     Active Substance: ATORVASTATIN CALCIUM
     Indication: Arteriosclerosis
     Route: 048
     Dates: start: 20230311, end: 20230311

REACTIONS (3)
  - Brain stem haemorrhage [Not Recovered/Not Resolved]
  - Respiratory arrest [Not Recovered/Not Resolved]
  - Cardiac arrest [Not Recovered/Not Resolved]

NARRATIVE: CASE EVENT DATE: 20230311
